FAERS Safety Report 14966679 (Version 1)
Quarter: 2018Q2

REPORT INFORMATION
  Report Type: Spontaneous
  Country: US (occurrence: US)
  Receive Date: 20180604
  Receipt Date: 20180604
  Transmission Date: 20180711
  Serious: Yes (Hospitalization, Other)
  Sender: FDA-Public Use
  Company Number: US-CONCORDIA PHARMACEUTICALS INC.-GSH201805-001799

PATIENT
  Age: 77 Year
  Sex: Female

DRUGS (3)
  1. DIGOXIN. [Suspect]
     Active Substance: DIGOXIN
     Indication: ATRIAL FIBRILLATION
  2. BETA BLOCKER [Concomitant]
     Active Substance: UNSPECIFIED INGREDIENT
     Indication: ATRIAL FIBRILLATION
  3. AMIODORONE [Suspect]
     Active Substance: AMIODARONE
     Indication: TACHYARRHYTHMIA

REACTIONS (5)
  - Sinus node dysfunction [Recovering/Resolving]
  - Drug interaction [Unknown]
  - Toxicity to various agents [Unknown]
  - Tachyarrhythmia [Recovering/Resolving]
  - Hyperthyroidism [Unknown]
